FAERS Safety Report 5738354-6 (Version None)
Quarter: 2008Q2

REPORT INFORMATION
  Report Type: 
  Country: None (occurrence: None)
  Receive Date: 20080513
  Receipt Date: 20080505
  Transmission Date: 20081010
  Serious: Yes (Other)
  Sender: FDA-Public Use
  Company Number: 2008011683

PATIENT
  Sex: Female

DRUGS (1)
  1. PURELL ORIGINAL (ETHYL ALCOHOL) [Suspect]
     Indication: ANTIBIOTIC PROPHYLAXIS
     Dosage: UNSPECIFIED, OPHTHALMIC
     Route: 047

REACTIONS (2)
  - ACCIDENTAL EXPOSURE [None]
  - EYE IRRITATION [None]
